FAERS Safety Report 9004796 (Version 1)
Quarter: 2013Q1

REPORT INFORMATION
  Report Type: Spontaneous
  Country: US (occurrence: US)
  Receive Date: 20130109
  Receipt Date: 20130109
  Transmission Date: 20140127
  Serious: No
  Sender: FDA-Public Use
  Company Number: US-PFIZER INC-2013007071

PATIENT
  Sex: Female

DRUGS (2)
  1. LYRICA [Suspect]
     Indication: MYALGIA
     Dosage: 75 MG, UNK
     Dates: start: 20130103
  2. CORTISONE [Concomitant]
     Dosage: UNK, (SHOT OF CORTISONE IN HER ROTATOR CUFF)

REACTIONS (2)
  - Off label use [Unknown]
  - Drug ineffective for unapproved indication [Unknown]
